FAERS Safety Report 5961869-2 (Version None)
Quarter: 2008Q4

REPORT INFORMATION
  Report Type: 
  Country: None (occurrence: None)
  Receive Date: 20081121
  Receipt Date: 20080623
  Transmission Date: 20090506
  Serious: No
  Sender: FDA-Public Use
  Company Number: US-BRISTOL-MYERS SQUIBB COMPANY-14239636

PATIENT

DRUGS (1)
  1. AVALIDE [Suspect]
     Dosage: 1 DOSAGE FORM = 300/25 (NO UNITS SPECIFIED)

REACTIONS (1)
  - BLOOD PRESSURE INADEQUATELY CONTROLLED [None]
